FAERS Safety Report 24282103 (Version 1)
Quarter: 2024Q3

REPORT INFORMATION
  Report Type: Spontaneous
  Country: US (occurrence: None)
  Receive Date: 20240903
  Receipt Date: 20240903
  Transmission Date: 20241017
  Serious: Yes (Hospitalization, Other)
  Sender: Public
  Company Number: None

PATIENT
  Age: 74 Year
  Sex: Male
  Weight: 107.3 kg

DRUGS (4)
  1. TECVAYLI [Suspect]
     Active Substance: TECLISTAMAB-CQYV
     Indication: Plasma cell myeloma
     Dosage: OTHER FREQUENCY : EVERY 2 WEEKS;?
     Route: 058
     Dates: start: 20240513
  2. dexamethasone 16mg [Concomitant]
     Dates: start: 20240827, end: 20240827
  3. DIPHENHYDRAMINE [Concomitant]
     Active Substance: DIPHENHYDRAMINE
     Dates: start: 20240827, end: 20240827
  4. acetaminophen 650mg [Concomitant]
     Dates: start: 20240827, end: 20240827

REACTIONS (3)
  - Pyrexia [None]
  - Headache [None]
  - Cytokine release syndrome [None]

NARRATIVE: CASE EVENT DATE: 20240903
